FAERS Safety Report 25944309 (Version 2)
Quarter: 2025Q4

REPORT INFORMATION
  Report Type: Spontaneous
  Country: NG (occurrence: NG)
  Receive Date: 20251021
  Receipt Date: 20251027
  Transmission Date: 20260117
  Serious: Yes (Death, Hospitalization)
  Sender: NOVARTIS
  Company Number: NG-002147023-NVSC2025NG161010

PATIENT
  Sex: Female

DRUGS (1)
  1. GLIVEC [Suspect]
     Active Substance: IMATINIB MESYLATE
     Indication: Chronic myeloid leukaemia
     Dosage: 400 MG (4 X 100MG)
     Route: 048
     Dates: start: 20250717

REACTIONS (1)
  - Lower respiratory tract infection [Fatal]
